FAERS Safety Report 18191248 (Version 2)
Quarter: 2021Q3

REPORT INFORMATION
  Report Type: Spontaneous
  Country: US (occurrence: US)
  Receive Date: 20200824
  Receipt Date: 20210908
  Transmission Date: 20211014
  Serious: No
  Sender: FDA-Public Use
  Company Number: US-ROCHE-2581379

PATIENT
  Sex: Female

DRUGS (2)
  1. ALECENSA [Suspect]
     Active Substance: ALECTINIB HYDROCHLORIDE
     Indication: LUNG NEOPLASM MALIGNANT
     Route: 065
     Dates: start: 20191214
  2. ALECENSA [Suspect]
     Active Substance: ALECTINIB HYDROCHLORIDE
     Route: 065
     Dates: start: 20191214

REACTIONS (2)
  - Diarrhoea [Unknown]
  - Abdominal distension [Unknown]
